FAERS Safety Report 7066288-6 (Version None)
Quarter: 2010Q4

REPORT INFORMATION
  Report Type: 
  Country: None (occurrence: None)
  Receive Date: 20101027
  Receipt Date: 20091119
  Transmission Date: 20110411
  Serious: Yes (Other)
  Sender: FDA-Public Use
  Company Number: US-WYE-H02060808

PATIENT
  Sex: Female

DRUGS (5)
  1. PREMPRO [Suspect]
     Indication: HORMONE REPLACEMENT THERAPY
  2. NORETHINDRONE ACETATE [Suspect]
  3. FEMHRT [Suspect]
  4. PREMARIN [Suspect]
     Indication: HORMONE REPLACEMENT THERAPY
  5. PROVERA [Suspect]
     Indication: HORMONE REPLACEMENT THERAPY

REACTIONS (1)
  - BREAST CANCER [None]
